FAERS Safety Report 24200748 (Version 2)
Quarter: 2024Q4

REPORT INFORMATION
  Report Type: Spontaneous
  Country: IL (occurrence: IL)
  Receive Date: 20240812
  Receipt Date: 20241015
  Transmission Date: 20250115
  Serious: Yes (Other)
  Sender: NOVARTIS
  Company Number: IL-002147023-NVSC2024IL161722

PATIENT
  Sex: Female

DRUGS (1)
  1. KESIMPTA [Suspect]
     Active Substance: OFATUMUMAB
     Indication: Product used for unknown indication
     Dosage: UNK, QMO (APRIL)
     Route: 065

REACTIONS (5)
  - Syncope [Unknown]
  - Fall [Unknown]
  - Back pain [Unknown]
  - Headache [Unknown]
  - Intentional dose omission [Unknown]
